FAERS Safety Report 16344407 (Version 1)
Quarter: 2019Q2

REPORT INFORMATION
  Report Type: Spontaneous
  Country: US (occurrence: US)
  Receive Date: 20190522
  Receipt Date: 20190522
  Transmission Date: 20190711
  Serious: Yes (Disabling)
  Sender: FDA-Public Use
  Company Number: US-PFIZER INC-2019212438

PATIENT
  Age: 47 Year
  Sex: Female
  Weight: 73.3 kg

DRUGS (1)
  1. LYRICA [Suspect]
     Active Substance: PREGABALIN
     Indication: FIBROMYALGIA
     Dosage: 100 MG, 3X/DAY
     Route: 048
     Dates: start: 201701

REACTIONS (4)
  - Therapeutic product effect incomplete [Unknown]
  - Fall [Unknown]
  - Off label use [Unknown]
  - Joint injury [Unknown]

NARRATIVE: CASE EVENT DATE: 201812
